FAERS Safety Report 12797870 (Version 1)
Quarter: 2016Q3

REPORT INFORMATION
  Report Type: Spontaneous
  Country: US (occurrence: US)
  Receive Date: 20160930
  Receipt Date: 20160930
  Transmission Date: 20161109
  Serious: No
  Sender: FDA-Public Use
  Company Number: US-LUPIN PHARMACEUTICALS INC.-2016-03709

PATIENT
  Sex: Female

DRUGS (1)
  1. CEPHALEXIN. [Suspect]
     Active Substance: CEPHALEXIN
     Indication: VAGINAL INFECTION
     Route: 065

REACTIONS (3)
  - Fatigue [Unknown]
  - Inappropriate schedule of drug administration [Unknown]
  - Frequent bowel movements [Unknown]
